FAERS Safety Report 12267383 (Version 1)
Quarter: 2016Q2

REPORT INFORMATION
  Report Type: Spontaneous
  Country: US (occurrence: None)
  Receive Date: 20160413
  Receipt Date: 20160413
  Transmission Date: 20160815
  Serious: Yes (Hospitalization)
  Sender: FDA-Public Use
  Company Number: None

PATIENT
  Age: 8 Year
  Sex: Male

DRUGS (4)
  1. METHYLPHENIDATE CD ER 20MG CAPS [Suspect]
     Active Substance: METHYLPHENIDATE
     Indication: ATTENTION DEFICIT/HYPERACTIVITY DISORDER
     Route: 048
     Dates: start: 20160406
  2. FLUOXETINE [Concomitant]
     Active Substance: FLUOXETINE HYDROCHLORIDE
  3. LEUCOVORIN. [Concomitant]
     Active Substance: LEUCOVORIN
  4. RISPERIDONE. [Concomitant]
     Active Substance: RISPERIDONE

REACTIONS (6)
  - Hyperhidrosis [None]
  - Hallucination [None]
  - Muscle spasms [None]
  - Blood pressure increased [None]
  - Jaw disorder [None]
  - Screaming [None]

NARRATIVE: CASE EVENT DATE: 20160407
